FAERS Safety Report 20223770 (Version 2)
Quarter: 2022Q1

REPORT INFORMATION
  Report Type: Spontaneous
  Country: JP (occurrence: JP)
  Receive Date: 20211223
  Receipt Date: 20220110
  Transmission Date: 20220423
  Serious: Yes (Other)
  Sender: FDA-Public Use
  Company Number: JP-BRACCO-2021JP05438

PATIENT
  Age: 72 Year
  Sex: Male

DRUGS (1)
  1. PROHANCE [Suspect]
     Active Substance: GADOTERIDOL
     Indication: Diagnostic procedure
     Dosage: 12 ML, SINGLE
     Route: 042

REACTIONS (1)
  - Anaphylactic shock [Recovered/Resolved]
